FAERS Safety Report 9342476 (Version 2)
Quarter: 2013Q3

REPORT INFORMATION
  Report Type: Report from Study
  Country: BR (occurrence: BR)
  Receive Date: 20130611
  Receipt Date: 20130815
  Transmission Date: 20140515
  Serious: Yes (Other)
  Sender: FDA-Public Use
  Company Number: PHHY2013BR059068

PATIENT
  Sex: Female
  Weight: 62 kg

DRUGS (9)
  1. ACLASTA [Suspect]
     Indication: OSTEOPOROSIS
     Dosage: 5 MG, 1 APPLICATION ONCE A YEAR
     Route: 042
     Dates: start: 2012
  2. ACLASTA [Suspect]
     Dosage: 5 MG, 1 APPLICATION ONCE A YEAR
     Route: 042
     Dates: start: 201305
  3. LOTAR [Concomitant]
     Dosage: 1 TABLET (5/50MG) A DAY
     Route: 048
  4. JANUVIA [Concomitant]
     Dosage: UNK UKN, UNK
  5. REPAGLINIDE [Concomitant]
     Dosage: 1 TABLET (1 MG),  A DAY
     Route: 048
     Dates: start: 2013
  6. INDAPIN [Concomitant]
     Dosage: 1 TABLET (1.5MG) A DAY
     Route: 048
  7. SELOZOK [Concomitant]
     Dosage: 1 TABLET (25 MG) A DAY
     Route: 048
  8. CRESTOR [Concomitant]
     Dosage: UNK UKN, UNK
  9. CALCIUM D3 [Concomitant]
     Indication: OSTEOPOROSIS
     Dosage: 1 TABLET (600 MG), A DAY
     Route: 048

REACTIONS (3)
  - Tendon rupture [Recovering/Resolving]
  - Ligament sprain [Recovering/Resolving]
  - Decreased appetite [Recovering/Resolving]
